FAERS Safety Report 6404402-3 (Version None)
Quarter: 2009Q4

REPORT INFORMATION
  Report Type: 
  Country: None (occurrence: None)
  Receive Date: 20091016
  Receipt Date: 20091012
  Transmission Date: 20100525
  Serious: Yes (Hospitalization, Disabling)
  Sender: FDA-Public Use
  Company Number: US-MERCK-0609USA05562

PATIENT
  Age: 71 Year
  Sex: Female

DRUGS (2)
  1. FOSAMAX [Suspect]
     Indication: OSTEOPOROSIS
     Route: 048
     Dates: end: 20041114
  2. FOSAMAX [Suspect]
     Route: 048
     Dates: start: 19990801

REACTIONS (30)
  - ADVERSE DRUG REACTION [None]
  - ANAEMIA [None]
  - ARTHROPATHY [None]
  - ATRIAL FIBRILLATION [None]
  - BASAL CELL CARCINOMA [None]
  - BLOOD THYROID STIMULATING HORMONE INCREASED [None]
  - BREAST CYST [None]
  - CARDIAC FAILURE CONGESTIVE [None]
  - CARPAL TUNNEL SYNDROME [None]
  - CATARACT [None]
  - COAGULOPATHY [None]
  - CREST SYNDROME [None]
  - DIVERTICULUM [None]
  - DYSPHAGIA [None]
  - GASTRITIS [None]
  - GASTRITIS EROSIVE [None]
  - GASTRITIS HYPERTROPHIC [None]
  - HAEMORRHOIDS [None]
  - HIATUS HERNIA [None]
  - HYPOKALAEMIA [None]
  - HYPOMAGNESAEMIA [None]
  - INTESTINAL POLYP [None]
  - LARYNGEAL DISORDER [None]
  - ORAL DISORDER [None]
  - OSTEONECROSIS [None]
  - RECTAL POLYP [None]
  - RESPIRATORY DISTRESS [None]
  - TOOTH FRACTURE [None]
  - UPPER GASTROINTESTINAL HAEMORRHAGE [None]
  - UTERINE LEIOMYOMA [None]
